FAERS Safety Report 20594544 (Version 1)
Quarter: 2022Q1

REPORT INFORMATION
  Report Type: Spontaneous
  Country: US (occurrence: US)
  Receive Date: 20220315
  Receipt Date: 20220315
  Transmission Date: 20220423
  Serious: Yes (Other)
  Sender: FDA-Public Use
  Company Number: US-Vifor (International) Inc.-VIT-2022-01581

PATIENT
  Age: 66 Year
  Sex: Female
  Weight: 62.9 kg

DRUGS (6)
  1. MIRCERA [Suspect]
     Active Substance: METHOXY POLYETHYLENE GLYCOL-EPOETIN BETA
     Indication: Nephrogenic anaemia
     Route: 040
     Dates: start: 20220126, end: 20220126
  2. MIRCERA [Suspect]
     Active Substance: METHOXY POLYETHYLENE GLYCOL-EPOETIN BETA
     Route: 040
     Dates: start: 20220209, end: 20220209
  3. VENOFER [Suspect]
     Active Substance: IRON SUCROSE
     Indication: Product used for unknown indication
     Route: 042
  4. VENOFER [Suspect]
     Active Substance: IRON SUCROSE
     Dosage: SEVENTH DOSE
     Route: 040
     Dates: start: 20220209, end: 20220209
  5. HECTOROL [Concomitant]
     Active Substance: DOXERCALCIFEROL
     Route: 040
  6. HECTOROL [Concomitant]
     Active Substance: DOXERCALCIFEROL
     Dosage: THIRD DOSE
     Route: 040
     Dates: start: 20220209, end: 20220209

REACTIONS (6)
  - Drug hypersensitivity [Recovered/Resolved]
  - Dyspnoea [Recovered/Resolved]
  - Blood pressure increased [Recovered/Resolved]
  - Restlessness [Recovered/Resolved]
  - Cough [Recovered/Resolved]
  - Feeling hot [Recovered/Resolved]

NARRATIVE: CASE EVENT DATE: 20220126
